FAERS Safety Report 23186181 (Version 1)
Quarter: 2023Q4

REPORT INFORMATION
  Report Type: Spontaneous
  Country: EU (occurrence: None)
  Receive Date: 20231115
  Receipt Date: 20231115
  Transmission Date: 20240110
  Serious: Yes (Death)
  Sender: FDA-Public Use
  Company Number: None

PATIENT

DRUGS (4)
  1. BUPRENORPHINE HYDROCHLORIDE [Suspect]
     Active Substance: BUPRENORPHINE HYDROCHLORIDE
  2. DIAZEPAM [Suspect]
     Active Substance: DIAZEPAM
  3. PREGABALIN [Suspect]
     Active Substance: PREGABALIN
  4. CANNABIS SATIVA SUBSP. INDICA TOP [Suspect]
     Active Substance: CANNABIS SATIVA SUBSP. INDICA TOP

REACTIONS (2)
  - Cardio-respiratory arrest [Fatal]
  - Drug abuse [Unknown]

NARRATIVE: CASE EVENT DATE: 20230701
